FAERS Safety Report 15209451 (Version 1)
Quarter: 2018Q3

REPORT INFORMATION
  Report Type: Spontaneous
  Country: US (occurrence: US)
  Receive Date: 20180727
  Receipt Date: 20180727
  Transmission Date: 20181010
  Serious: Yes (Other)
  Sender: FDA-Public Use
  Company Number: US-NOVOPROD-612284

PATIENT
  Age: 72 Year
  Sex: Male

DRUGS (2)
  1. NOVOLOG [Suspect]
     Active Substance: INSULIN ASPART
     Indication: TYPE 2 DIABETES MELLITUS
     Dosage: 9 U, TID
     Route: 058
     Dates: start: 2003
  2. NOVOLOG [Suspect]
     Active Substance: INSULIN ASPART
     Dosage: 10 U, TID
     Route: 058

REACTIONS (6)
  - Laceration [Recovered/Resolved]
  - Fall [Recovered/Resolved]
  - Arrhythmia [Not Recovered/Not Resolved]
  - Hepatic cancer [Recovered/Resolved]
  - Hypoglycaemic unconsciousness [Recovered/Resolved]
  - Blood glucose increased [Recovered/Resolved]

NARRATIVE: CASE EVENT DATE: 2008
